FAERS Safety Report 11208483 (Version 1)
Quarter: 2015Q2

REPORT INFORMATION
  Report Type: Report from Study
  Country: US (occurrence: US)
  Receive Date: 20150622
  Receipt Date: 20150622
  Transmission Date: 20150821
  Serious: No
  Sender: FDA-Public Use
  Company Number: US-ABBVIE-15P-163-1369322-00

PATIENT
  Sex: Female

DRUGS (1)
  1. VIEKIRA PAK [Suspect]
     Active Substance: DASABUVIR\OMBITASVIR\PARITAPREVIR\RITONAVIR
     Indication: CHRONIC HEPATITIS C
     Dosage: 2 PINK TABS AND 2 BEIGE TABS, AM AND PM
     Route: 048
     Dates: start: 201502

REACTIONS (3)
  - Rhinorrhoea [Unknown]
  - Sinus congestion [Unknown]
  - Hypersensitivity [Unknown]
